FAERS Safety Report 9228210 (Version 2)
Quarter: 2013Q2

REPORT INFORMATION
  Report Type: Spontaneous
  Country: DE (occurrence: None)
  Receive Date: 20130410
  Receipt Date: 20130621
  Transmission Date: 20140414
  Serious: Yes (Death)
  Sender: FDA-Public Use
  Company Number: TPA2013A02615

PATIENT
  Age: 54 Year
  Sex: Female

DRUGS (25)
  1. FEBUXOSTAT [Suspect]
     Indication: TUMOUR LYSIS SYNDROME
     Route: 048
     Dates: start: 20130327, end: 20130401
  2. ALLOPURINOL [Suspect]
     Indication: TUMOUR LYSIS SYNDROME
     Route: 048
     Dates: start: 20130327, end: 20130401
  3. MEROPEN [Concomitant]
  4. CLONT [Concomitant]
  5. VANCOMYCIN [Concomitant]
  6. RITUXIMAB [Concomitant]
  7. IFOSFAMIDA [Concomitant]
  8. CARBOPLATIN [Concomitant]
  9. ETOPOSID (ETOPOSIDE) [Concomitant]
  10. VITAMIN B12 (CYANOCABALAMIN) [Concomitant]
  11. FOLIC ACID (FOLIC ACID) [Concomitant]
  12. BIFITERAL (LACTULOSE) [Concomitant]
  13. IRENAT (SODIUM PERCHLORATE) [Concomitant]
  14. PASPERTIN (METOCLOPRAMIDE HYDROCHLORIDE) [Concomitant]
  15. PANTOZOL (PANTOPRAZOLE SODIUM SESQUIHYDRATE) [Concomitant]
  16. PALLADON (HYDROMORPHONE HYDROCHLORIDE) [Concomitant]
  17. GABAPENTIN (GABAPENTIN) [Concomitant]
  18. AMITRIPTYLIN (AMITRIPTYLINE HYDROCHLORIDE) [Concomitant]
  19. NOVALGIN (CAFFEINE, PARACETAMOL, PROPYPHENAZONE) [Concomitant]
  20. AMPHO-MORONAL (AMPHOTERICIN B) [Concomitant]
  21. PREDNISOLON (PREDNISOLONE) [Concomitant]
  22. CLEXANE (ENOXAPRARIN SODIUM) [Concomitant]
  23. OXYCODONE (OXYCODONE) [Concomitant]
  24. TAZOBAC (PIPERACILLIN SODIUM, TAZOBACTAM SODIUM) [Concomitant]
  25. THIAMAZOL (THIAMAZOLE) [Concomitant]

REACTIONS (6)
  - Sepsis [None]
  - Shock [None]
  - Haematuria [None]
  - General physical health deterioration [None]
  - Urine output decreased [None]
  - Dialysis [None]
